FAERS Safety Report 6660248-2 (Version None)
Quarter: 2010Q1

REPORT INFORMATION
  Report Type: 
  Country: None (occurrence: None)
  Receive Date: 20100331
  Receipt Date: 20100323
  Transmission Date: 20100710
  Serious: No
  Sender: FDA-Public Use
  Company Number: 2009BI034938

PATIENT
  Sex: Male

DRUGS (2)
  1. TYSABRI [Suspect]
     Indication: MULTIPLE SCLEROSIS
     Route: 042
     Dates: start: 20070227, end: 20070615
  2. TYSABRI [Suspect]
     Route: 042
     Dates: start: 20070710

REACTIONS (11)
  - CLAVICLE FRACTURE [None]
  - FALL [None]
  - FATIGUE [None]
  - INTESTINAL PERFORATION [None]
  - JOINT DISLOCATION [None]
  - LOSS OF CONTROL OF LEGS [None]
  - MENTAL IMPAIRMENT [None]
  - PAIN [None]
  - READING DISORDER [None]
  - TOOTH FRACTURE [None]
  - UPPER LIMB FRACTURE [None]
